FAERS Safety Report 10636544 (Version 1)
Quarter: 2014Q4

REPORT INFORMATION
  Report Type: Spontaneous
  Country: FI (occurrence: FI)
  Receive Date: 20141207
  Receipt Date: 20141207
  Transmission Date: 20150529
  Serious: Yes (Disabling)
  Sender: FDA-Public Use
  Company Number: FI-TEVA-525039ISR

PATIENT
  Age: 55 Year
  Sex: Female

DRUGS (1)
  1. LETROZOL RATIOPHARM [Suspect]
     Active Substance: LETROZOLE
     Indication: NEOPLASM
     Route: 048
     Dates: start: 201108

REACTIONS (3)
  - Cerebral vasoconstriction [Recovered/Resolved with Sequelae]
  - Hypercholesterolaemia [Not Recovered/Not Resolved]
  - Hemiplegia [Recovered/Resolved with Sequelae]

NARRATIVE: CASE EVENT DATE: 201211
